FAERS Safety Report 6826990-5 (Version None)
Quarter: 2010Q2

REPORT INFORMATION
  Report Type: 
  Country: None (occurrence: None)
  Receive Date: 20100520
  Receipt Date: 20090424
  Transmission Date: 20101027
  Serious: Yes (Hospitalization, Other)
  Sender: FDA-Public Use
  Company Number: 2009196848

PATIENT
  Age: 58 Year
  Sex: Female
  Weight: 58 kg

DRUGS (4)
  1. PROVERA [Suspect]
     Indication: MENOPAUSAL SYMPTOMS
     Dosage: 10 MG, 1X/DAY
     Dates: start: 19940101, end: 19980101
  2. PREMARIN [Suspect]
     Indication: MENOPAUSAL SYMPTOMS
     Dates: start: 19940101, end: 20040101
  3. PREMPRO [Suspect]
     Indication: MENOPAUSAL SYMPTOMS
     Dates: start: 19980101, end: 20020101
  4. INDERAL [Concomitant]

REACTIONS (1)
  - BREAST CANCER FEMALE [None]
